FAERS Safety Report 23817854 (Version 1)
Quarter: 2024Q2

REPORT INFORMATION
  Report Type: Spontaneous
  Country: AU (occurrence: AU)
  Receive Date: 20240506
  Receipt Date: 20240506
  Transmission Date: 20240716
  Serious: Yes (Hospitalization, Other)
  Sender: FDA-Public Use
  Company Number: AU-SA-SAC20240426000126

PATIENT
  Age: 45 Year
  Sex: Male

DRUGS (14)
  1. LANTUS [Suspect]
     Active Substance: INSULIN GLARGINE
     Dosage: UNK
     Route: 065
  2. LORAZEPAM [Suspect]
     Active Substance: LORAZEPAM
     Indication: Anxiety
     Dosage: UNK
  3. LORAZEPAM [Suspect]
     Active Substance: LORAZEPAM
     Indication: Mental impairment
  4. ACTRAPID [Suspect]
     Active Substance: INSULIN HUMAN
     Indication: Product used for unknown indication
  5. TRIKAFTA [Suspect]
     Active Substance: ELEXACAFTOR\IVACAFTOR\TEZACAFTOR
     Indication: Cystic fibrosis
     Dosage: 1 FILM-COATED TABLET EVERY 12 HOUR
     Route: 048
     Dates: start: 20200115
  6. HUMALOG [Suspect]
     Active Substance: INSULIN LISPRO
     Indication: Product used for unknown indication
  7. DORNASE ALFA [Concomitant]
     Active Substance: DORNASE ALFA
     Route: 055
  8. AZITHROMYCIN [Concomitant]
     Active Substance: AZITHROMYCIN
  9. CREON [Concomitant]
     Active Substance: PANCRELIPASE AMYLASE\PANCRELIPASE LIPASE\PANCRELIPASE PROTEASE
  10. URSODIOL [Concomitant]
     Active Substance: URSODIOL
  11. SODIUM CHLORIDE [Concomitant]
     Active Substance: SODIUM CHLORIDE
  12. ACETYLCYSTEINE [Concomitant]
     Active Substance: ACETYLCYSTEINE
     Route: 055
  13. SERETIDE [Concomitant]
     Active Substance: FLUTICASONE PROPIONATE\SALMETEROL XINAFOATE
  14. INSULIN LISPRO [Concomitant]
     Active Substance: INSULIN LISPRO

REACTIONS (8)
  - Suicidal ideation [Recovered/Resolved]
  - Depressed mood [Unknown]
  - Mental impairment [Not Recovered/Not Resolved]
  - Anxiety [Not Recovered/Not Resolved]
  - Malnutrition [Recovering/Resolving]
  - Adjustment disorder [Unknown]
  - Depression [Unknown]
  - Intentional overdose [Unknown]

NARRATIVE: CASE EVENT DATE: 20210601
